FAERS Safety Report 7018107-1 (Version None)
Quarter: 2010Q3

REPORT INFORMATION
  Report Type: 
  Country: None (occurrence: None)
  Receive Date: 20100927
  Receipt Date: 20100927
  Transmission Date: 20110219
  Serious: Yes (Death)
  Sender: FDA-Public Use
  Company Number: None

PATIENT
  Age: 25 Year
  Sex: Female
  Weight: 58.9676 kg

DRUGS (1)
  1. FLAGYL [Suspect]
     Indication: VAGINITIS BACTERIAL
     Dosage: ONE TABLET 2 TIMES DAY/7 DAYS PO
     Route: 048
     Dates: start: 20100914, end: 20100914

REACTIONS (4)
  - ABORTION SPONTANEOUS [None]
  - DRUG EXPOSURE DURING PREGNANCY [None]
  - HYPERSENSITIVITY [None]
  - URTICARIA [None]
